FAERS Safety Report 14401972 (Version 1)
Quarter: 2018Q1

REPORT INFORMATION
  Report Type: Spontaneous
  Country: SA (occurrence: SA)
  Receive Date: 20180116
  Receipt Date: 20180116
  Transmission Date: 20180509
  Serious: Yes (Hospitalization)
  Sender: FDA-Public Use
  Company Number: None

PATIENT
  Age: 6 Week
  Sex: Male

DRUGS (1)
  1. ALPROSTADIL. [Suspect]
     Active Substance: ALPROSTADIL
     Dates: start: 20170108, end: 20170202

REACTIONS (5)
  - Pneumatosis intestinalis [None]
  - Obstruction gastric [None]
  - Intestinal ischaemia [None]
  - Vomiting [None]
  - Hypoglycaemia [None]

NARRATIVE: CASE EVENT DATE: 20170202
